FAERS Safety Report 4925320-3 (Version None)
Quarter: 2006Q1

REPORT INFORMATION
  Report Type: 
  Country: None (occurrence: None)
  Receive Date: 20060224
  Receipt Date: 20060224
  Transmission Date: 20060701
  Serious: Yes (Life-Threatening)
  Sender: FDA-Public Use
  Company Number: None

PATIENT
  Age: 17 Year
  Sex: Female
  Weight: 35 kg

DRUGS (3)
  1. OXYBUTININ 5 MG [Suspect]
     Indication: BLADDER SPASM
     Dosage: 5 MG ONCE PO
     Route: 048
     Dates: start: 20060214, end: 20060214
  2. NITROFURANTOIN [Concomitant]
  3. ZOLOFT [Concomitant]

REACTIONS (5)
  - APHASIA [None]
  - APNOEA [None]
  - CYANOSIS [None]
  - GRAND MAL CONVULSION [None]
  - HEMIPARESIS [None]
